FAERS Safety Report 15706575 (Version 1)
Quarter: 2018Q4

REPORT INFORMATION
  Report Type: Spontaneous
  Country: TR (occurrence: TR)
  Receive Date: 20181210
  Receipt Date: 20181210
  Transmission Date: 20190205
  Serious: Yes (Life-Threatening, Other)
  Sender: FDA-Public Use
  Company Number: TR-BAYER-2018-223583

PATIENT
  Sex: Female
  Weight: 67 kg

DRUGS (1)
  1. YASMIN [Suspect]
     Active Substance: DROSPIRENONE\ETHINYL ESTRADIOL
     Dosage: UNK
     Route: 048
     Dates: start: 201811

REACTIONS (8)
  - Discoloured vomit [Recovered/Resolved]
  - Chills [Recovered/Resolved]
  - Muscular weakness [None]
  - Respiratory rate increased [Recovered/Resolved]
  - Hypoaesthesia [Recovered/Resolved]
  - Diarrhoea [Recovered/Resolved]
  - Depressed level of consciousness [Recovered/Resolved]
  - Nausea [None]

NARRATIVE: CASE EVENT DATE: 20181116
